FAERS Safety Report 7964172-4 (Version None)
Quarter: 2011Q4

REPORT INFORMATION
  Report Type: 
  Country: None (occurrence: None)
  Receive Date: 20111208
  Receipt Date: 20111201
  Transmission Date: 20120403
  Serious: Yes (Other)
  Sender: FDA-Public Use
  Company Number: US-BRISTOL-MYERS SQUIBB COMPANY-16266512

PATIENT
  Sex: Female

DRUGS (2)
  1. CORGARD [Suspect]
     Indication: TACHYCARDIA
  2. ATIVAN [Suspect]
     Indication: TACHYCARDIA

REACTIONS (1)
  - BREAST CANCER [None]
